FAERS Safety Report 7178351-X (Version None)
Quarter: 2010Q4

REPORT INFORMATION
  Report Type: 
  Country: None (occurrence: None)
  Receive Date: 20101220
  Receipt Date: 20101207
  Transmission Date: 20110411
  Serious: Yes (Other)
  Sender: FDA-Public Use
  Company Number: US-PFIZER INC-US-WYE-H18501010

PATIENT
  Sex: Female

DRUGS (2)
  1. PREMARIN [Suspect]
     Dosage: UNK
     Route: 065
  2. PRISTIQ [Suspect]
     Dosage: UNK
     Route: 065

REACTIONS (2)
  - ANORECTAL DISORDER [None]
  - INTERVERTEBRAL DISC DISORDER [None]
